FAERS Safety Report 9114517 (Version 1)
Quarter: 2013Q1

REPORT INFORMATION
  Report Type: Spontaneous
  Country: BR (occurrence: None)
  Receive Date: 20130129
  Receipt Date: 20130129
  Transmission Date: 20140127
  Serious: Yes (Hospitalization)
  Sender: FDA-Public Use
  Company Number: BR-1195884

PATIENT
  Age: 88 Year
  Sex: Male
  Weight: 70 kg

DRUGS (7)
  1. AZOPT 1 % OPHTHALMIC SUSPENSION (AZOPT 1%) SOLUTION (BRIMONIDINE TARTRATE 0.2%) [Suspect]
     Indication: GLAUCOMA
     Dates: start: 20121217
  2. BRIMONIDINE TARTRATE O.2% OPHTHALMIC SOLUTION [Suspect]
     Indication: GLAUCOMA
     Route: 031
     Dates: start: 20121217
  3. MONOCRDIL [Concomitant]
  4. LOSARTIN POTASSICA [Concomitant]
  5. ATENENOLOL [Concomitant]
  6. DIAZEPAM [Concomitant]
  7. SUSTRATE [Concomitant]

REACTIONS (9)
  - Cardiac arrest [None]
  - Bradycardia [None]
  - Dyspnoea [None]
  - Cardiac pacemaker insertion [None]
  - Eye discharge [None]
  - Dizziness [None]
  - Somnolence [None]
  - Dry mouth [None]
  - Lip disorder [None]
